FAERS Safety Report 9471018 (Version 1)
Quarter: 2013Q3

REPORT INFORMATION
  Report Type: Spontaneous
  Country: IN (occurrence: None)
  Receive Date: 20130815
  Receipt Date: 20130815
  Transmission Date: 20140515
  Serious: Yes (Hospitalization)
  Sender: FDA-Public Use
  Company Number: FK201303150

PATIENT
  Age: 41 Year
  Sex: Female

DRUGS (7)
  1. TRANEXAMIC ACID [Suspect]
     Indication: DYSMENORRHOEA
  2. TRANEXAMIC ACID [Suspect]
     Indication: MENORRHAGIA
  3. MEFENAMIC ACID [Suspect]
     Indication: DYSMENORRHOEA
  4. MEFENAMIC ACID [Suspect]
     Indication: MENORRHAGIA
  5. AMLODIPINE (AMLODIPINE) [Concomitant]
  6. ATENOLOL (ATENOLOL) [Concomitant]
  7. ETAMSYLATE (ETAMSILATE) [Concomitant]

REACTIONS (3)
  - Acute myocardial infarction [None]
  - Pallor [None]
  - Coronary artery thrombosis [None]
